FAERS Safety Report 25899426 (Version 1)
Quarter: 2025Q4

REPORT INFORMATION
  Report Type: Spontaneous
  Country: GB (occurrence: GB)
  Receive Date: 20251009
  Receipt Date: 20251009
  Transmission Date: 20260117
  Serious: Yes (Life-Threatening, Hospitalization, Disabling)
  Sender: DR REDDYS
  Company Number: None

PATIENT
  Age: 5 Decade
  Sex: Female

DRUGS (4)
  1. OLANZAPINE [Suspect]
     Active Substance: OLANZAPINE
     Indication: Schizophrenia
     Dosage: 5 MG TWICE DAILY
     Route: 048
     Dates: start: 2018
  2. OLANZAPINE [Suspect]
     Active Substance: OLANZAPINE
     Route: 048
  3. OLANZAPINE [Suspect]
     Active Substance: OLANZAPINE
     Dosage: DOSE WAS FURTHER ESCALATED TO 20 MG APPROXIMATELY 15 DAYS BEFORE HOSPITAL ADMISSION
     Route: 048
  4. LURASIDONE [Concomitant]
     Active Substance: LURASIDONE
     Indication: Schizophrenia
     Dosage: 74 MG NIGHTLY
     Route: 048

REACTIONS (4)
  - Rhabdomyolysis [Recovering/Resolving]
  - Inappropriate antidiuretic hormone secretion [Recovering/Resolving]
  - Peroneal nerve injury [Recovering/Resolving]
  - Peroneal nerve palsy [Recovering/Resolving]
